FAERS Safety Report 16945972 (Version 3)
Quarter: 2019Q4

REPORT INFORMATION
  Report Type: Spontaneous
  Country: DE (occurrence: DE)
  Receive Date: 20191022
  Receipt Date: 20191223
  Transmission Date: 20200122
  Serious: Yes (Death, Other)
  Sender: FDA-Public Use
  Company Number: DE-ELI_LILLY_AND_COMPANY-DE201910008864

PATIENT
  Age: 60 Year
  Sex: Male

DRUGS (5)
  1. PEMBROLIZUMAB. [Suspect]
     Active Substance: PEMBROLIZUMAB
     Indication: METASTATIC NEOPLASM
     Dosage: UNK, CYCLICAL
     Route: 065
     Dates: start: 20181017, end: 20181220
  2. NINTEDANIB [Suspect]
     Active Substance: NINTEDANIB
     Indication: METASTATIC NEOPLASM
     Dosage: UNK, UNKNOWN
     Route: 065
     Dates: start: 20190131, end: 20190408
  3. CISPLATIN. [Suspect]
     Active Substance: CISPLATIN
     Indication: METASTATIC NEOPLASM
     Dosage: UNK UNK, UNKNOWN
     Route: 065
     Dates: start: 20181017, end: 20181220
  4. PEMETREXED. [Suspect]
     Active Substance: PEMETREXED
     Indication: METASTATIC NEOPLASM
     Dosage: UNK UNK, UNKNOWN
     Route: 065
     Dates: start: 20181017, end: 20181220
  5. DOCETAXEL. [Suspect]
     Active Substance: DOCETAXEL
     Indication: METASTATIC NEOPLASM
     Dosage: UNK UNK, UNKNOWN
     Route: 065
     Dates: start: 20190131, end: 20190404

REACTIONS (3)
  - Off label use [Unknown]
  - Death [Fatal]
  - Malignant neoplasm progression [Fatal]

NARRATIVE: CASE EVENT DATE: 2019
